FAERS Safety Report 13127769 (Version 3)
Quarter: 2017Q1

REPORT INFORMATION
  Report Type: Spontaneous
  Country: JP (occurrence: JP)
  Receive Date: 20170118
  Receipt Date: 20170315
  Transmission Date: 20170428
  Serious: Yes (Death, Hospitalization, Other)
  Sender: FDA-Public Use
  Company Number: PHJP2016JP033867

PATIENT
  Sex: Female

DRUGS (3)
  1. SANDOSTATIN LAR DEPOT [Suspect]
     Active Substance: OCTREOTIDE ACETATE
     Indication: NEUROENDOCRINE CARCINOMA
     Route: 030
     Dates: start: 201602, end: 201606
  2. IRINOTECAN HYDROCHLORIDE. [Concomitant]
     Active Substance: IRINOTECAN HYDROCHLORIDE
     Indication: PRODUCT USED FOR UNKNOWN INDICATION
     Route: 041
  3. AFINITOR [Suspect]
     Active Substance: EVEROLIMUS
     Indication: NEUROENDOCRINE TUMOUR
     Dosage: 10 MG, UNK
     Route: 048
     Dates: start: 20161121, end: 201701

REACTIONS (10)
  - Norovirus test positive [Unknown]
  - Malignant neoplasm progression [Fatal]
  - Blood glucose fluctuation [Not Recovered/Not Resolved]
  - Increased appetite [Unknown]
  - Hypoglycaemia [Unknown]
  - Oedema [Unknown]
  - Hypoalbuminaemia [Unknown]
  - Pneumonia [Unknown]
  - Hyperglycaemia [Unknown]
  - Anaemia [Unknown]

NARRATIVE: CASE EVENT DATE: 201606
